FAERS Safety Report 12963980 (Version 1)
Quarter: 2016Q4

REPORT INFORMATION
  Report Type: Spontaneous
  Country: US (occurrence: US)
  Receive Date: 20161122
  Receipt Date: 20161122
  Transmission Date: 20170207
  Serious: Yes (Other)
  Sender: FDA-Public Use
  Company Number: US-BAYER-2016-221781

PATIENT
  Age: 55 Year
  Sex: Female

DRUGS (1)
  1. GADAVIST [Suspect]
     Active Substance: GADOBUTROL
     Indication: NUCLEAR MAGNETIC RESONANCE IMAGING
     Dosage: 1 MMOL, ONCE
     Route: 042
     Dates: start: 20161115

REACTIONS (3)
  - Contrast media reaction [None]
  - Off label use [None]
  - Urticaria [None]

NARRATIVE: CASE EVENT DATE: 20161115
